FAERS Safety Report 7825936-0 (Version None)
Quarter: 2011Q4

REPORT INFORMATION
  Report Type: 
  Country: None (occurrence: None)
  Receive Date: 20111019
  Receipt Date: 20111005
  Transmission Date: 20120403
  Serious: Yes (Death, Other)
  Sender: FDA-Public Use
  Company Number: JP-ROCHE-756107

PATIENT
  Sex: Male
  Weight: 64 kg

DRUGS (14)
  1. ALOXI [Concomitant]
     Route: 041
     Dates: start: 20110120, end: 20110120
  2. EMEND [Concomitant]
     Route: 048
     Dates: start: 20110122, end: 20110122
  3. VENA [Concomitant]
     Route: 048
     Dates: start: 20110120, end: 20110120
  4. MAGNESIUM OXIDE [Concomitant]
     Route: 048
     Dates: start: 20110120, end: 20110124
  5. CARBOPLATIN [Suspect]
     Indication: LUNG ADENOCARCINOMA METASTATIC
     Dosage: DOSAGE WAS REPORTED AS UNCERTAIN
     Route: 041
     Dates: start: 20110120, end: 20110120
  6. TAXOL [Suspect]
     Indication: LUNG ADENOCARCINOMA METASTATIC
     Dosage: DOSAGE WAS REPORTED AS UNCERTAIN
     Route: 041
     Dates: start: 20110120, end: 20110120
  7. EMEND [Concomitant]
     Route: 048
     Dates: start: 20110120, end: 20110121
  8. MUCODYNE [Concomitant]
     Route: 048
     Dates: start: 20110120, end: 20110124
  9. CODEINE PHOSPHATE [Concomitant]
     Dosage: DOSE: 2
     Route: 048
     Dates: start: 20110120, end: 20110124
  10. ZANTAC [Concomitant]
     Route: 041
     Dates: start: 20110120, end: 20110120
  11. MUCOSOLVAN [Concomitant]
     Route: 048
     Dates: start: 20110120, end: 20110124
  12. AVASTIN [Suspect]
     Indication: LUNG ADENOCARCINOMA METASTATIC
     Route: 041
     Dates: start: 20110120, end: 20110120
  13. NAPROXEN [Concomitant]
     Route: 048
     Dates: start: 20110120, end: 20110124
  14. DECADRON [Concomitant]
     Route: 041
     Dates: start: 20110120, end: 20110120

REACTIONS (5)
  - COMA HEPATIC [None]
  - RESPIRATORY DISTRESS [None]
  - HEPATITIS FULMINANT [None]
  - VARICES OESOPHAGEAL [None]
  - GASTRIC HAEMORRHAGE [None]
